FAERS Safety Report 10223923 (Version 2)
Quarter: 2014Q2

REPORT INFORMATION
  Report Type: Spontaneous
  Country: US (occurrence: US)
  Receive Date: 20140609
  Receipt Date: 20140619
  Transmission Date: 20141212
  Serious: Yes (Hospitalization)
  Sender: FDA-Public Use
  Company Number: US-JNJFOC-20140517459

PATIENT
  Age: 59 Year
  Sex: Female

DRUGS (7)
  1. STELARA [Suspect]
     Indication: PRODUCT USED FOR UNKNOWN INDICATION
     Route: 058
  2. HUMIRA [Suspect]
     Indication: PSORIASIS
     Route: 065
  3. ZYRTEC [Concomitant]
     Indication: MULTIPLE ALLERGIES
     Route: 065
  4. FOLIC ACID [Concomitant]
     Route: 065
  5. WELLBUTRIN [Concomitant]
     Indication: DEPRESSION
     Route: 065
  6. KLONOPIN [Concomitant]
     Indication: ANXIETY
     Route: 065
  7. PAXIL [Concomitant]
     Indication: DEPRESSION
     Route: 065

REACTIONS (4)
  - Benign small intestinal neoplasm [Unknown]
  - Liver disorder [Unknown]
  - Nasopharyngitis [Unknown]
  - Drug ineffective [Unknown]
